FAERS Safety Report 10531506 (Version 3)
Quarter: 2015Q1

REPORT INFORMATION
  Report Type: Report from Study
  Country: BR (occurrence: BR)
  Receive Date: 20141021
  Receipt Date: 20150219
  Transmission Date: 20150720
  Serious: Yes (Other)
  Sender: FDA-Public Use
  Company Number: PHHY2014BR136165

PATIENT
  Age: 75 Year
  Sex: Male
  Weight: 56 kg

DRUGS (1)
  1. SANDOSTATIN LAR DEPOT [Suspect]
     Active Substance: OCTREOTIDE ACETATE
     Indication: HEPATIC NEOPLASM
     Dosage: 30 MG, ONCE A MONTH
     Route: 030
     Dates: end: 20150117

REACTIONS (8)
  - Product use issue [Unknown]
  - Bone neoplasm [Not Recovered/Not Resolved]
  - Platelet count decreased [Recovering/Resolving]
  - Back pain [Not Recovered/Not Resolved]
  - Therapeutic response decreased [Unknown]
  - Pain in extremity [Not Recovered/Not Resolved]
  - Abdominal neoplasm [Unknown]
  - Dry skin [Recovering/Resolving]

NARRATIVE: CASE EVENT DATE: 201308
